FAERS Safety Report 20784679 (Version 1)
Quarter: 2022Q2

REPORT INFORMATION
  Report Type: Spontaneous
  Country: US (occurrence: US)
  Receive Date: 20220504
  Receipt Date: 20220504
  Transmission Date: 20220721
  Serious: No
  Sender: FDA-Public Use
  Company Number: US-PFIZER INC-202200469448

PATIENT
  Age: 45 Year
  Sex: Male

DRUGS (2)
  1. EUCRISA [Suspect]
     Active Substance: CRISABOROLE
     Dosage: UNK
     Route: 061
  2. RINVOQ [Suspect]
     Active Substance: UPADACITINIB
     Dosage: UNK
     Route: 048
     Dates: start: 20220318

REACTIONS (8)
  - Dermatitis atopic [Unknown]
  - Erythema [Unknown]
  - Eczema [Unknown]
  - Lichenification [Unknown]
  - Rash pruritic [Unknown]
  - Rash [Unknown]
  - Rash erythematous [Unknown]
  - Skin exfoliation [Unknown]
